FAERS Safety Report 16029519 (Version 1)
Quarter: 2019Q2

REPORT INFORMATION
  Report Type: Spontaneous
  Country: US (occurrence: US)
  Receive Date: 20190303
  Receipt Date: 20190303
  Transmission Date: 20190711
  Serious: No
  Sender: FDA-Public Use
  Company Number: None

PATIENT
  Age: 27 Year
  Sex: Female
  Weight: 63.9 kg

DRUGS (1)
  1. SERTRALINE [Suspect]
     Active Substance: SERTRALINE HYDROCHLORIDE
     Indication: DEPRESSION
     Dosage: ?          QUANTITY:.5 TABLET(S);?
     Route: 048
     Dates: start: 20190221, end: 20190226

REACTIONS (6)
  - Vision blurred [None]
  - Hypertension [None]
  - Chest discomfort [None]
  - Tremor [None]
  - Mydriasis [None]
  - Palpitations [None]

NARRATIVE: CASE EVENT DATE: 20190227
